FAERS Safety Report 9263848 (Version 1)
Quarter: 2013Q2

REPORT INFORMATION
  Report Type: Spontaneous
  Country: US (occurrence: US)
  Receive Date: 20130430
  Receipt Date: 20130430
  Transmission Date: 20140414
  Serious: No
  Sender: FDA-Public Use
  Company Number: US-PFIZER INC-2013129999

PATIENT
  Sex: Male

DRUGS (4)
  1. LIPITOR [Suspect]
     Indication: HYPERTENSION
     Dosage: 20 MG, 2X/DAY
  2. ATORVASTATIN CALCIUM [Suspect]
     Indication: HYPERTENSION
     Dosage: 20 MG, 2X/DAY
  3. LISINOPRIL [Concomitant]
     Dosage: UNK
  4. DIOVAN (VALSARTAN) [Concomitant]
     Dosage: UNK

REACTIONS (2)
  - Off label use [Unknown]
  - Rash [Unknown]
